FAERS Safety Report 19160026 (Version 1)
Quarter: 2021Q2

REPORT INFORMATION
  Report Type: Spontaneous
  Country: JP (occurrence: JP)
  Receive Date: 20210421
  Receipt Date: 20210421
  Transmission Date: 20210717
  Serious: Yes (Other)
  Sender: FDA-Public Use
  Company Number: JP-SAKK-2021SA125186AA

PATIENT

DRUGS (2)
  1. AMARYL [Suspect]
     Active Substance: GLIMEPIRIDE
     Indication: PRODUCT USED FOR UNKNOWN INDICATION
     Dosage: 3 MG
     Route: 048
  2. AMARYL [Suspect]
     Active Substance: GLIMEPIRIDE
     Dosage: 1 MG
     Route: 048

REACTIONS (3)
  - Hypoglycaemia [Unknown]
  - Wrong dose [Unknown]
  - Aspiration [Unknown]
